FAERS Safety Report 20692796 (Version 1)
Quarter: 2022Q2

REPORT INFORMATION
  Report Type: Spontaneous
  Country: US (occurrence: None)
  Receive Date: 20220406
  Receipt Date: 20220406
  Transmission Date: 20220720
  Serious: No
  Sender: FDA-Public Use
  Company Number: None

PATIENT
  Age: 44 Year
  Sex: Male

DRUGS (1)
  1. BETASERON [Suspect]
     Active Substance: INTERFERON BETA-1B
     Indication: Multiple sclerosis
     Dosage: FREQUENCY : EVERY OTHER DAY;?
     Route: 058
     Dates: start: 201609

REACTIONS (1)
  - Seizure [None]

NARRATIVE: CASE EVENT DATE: 20220330
